FAERS Safety Report 10479853 (Version 1)
Quarter: 2014Q3

REPORT INFORMATION
  Report Type: Spontaneous
  Country: GB (occurrence: GB)
  Receive Date: 20140928
  Receipt Date: 20140928
  Transmission Date: 20150326
  Serious: Yes (Other)
  Sender: FDA-Public Use
  Company Number: GB-AMGEN-GBRSP2014072871

PATIENT
  Sex: Female
  Weight: 90 kg

DRUGS (1)
  1. PROLIA [Suspect]
     Active Substance: DENOSUMAB
     Indication: OSTEOPOROSIS POSTMENOPAUSAL
     Route: 065

REACTIONS (8)
  - Mobility decreased [Unknown]
  - Angina pectoris [Unknown]
  - Asthenia [Unknown]
  - Renal failure chronic [Unknown]
  - Surgery [Unknown]
  - Decreased activity [Unknown]
  - Osteogenesis imperfecta [Unknown]
  - Peripheral vascular disorder [Unknown]
